FAERS Safety Report 21435537 (Version 5)
Quarter: 2022Q4

REPORT INFORMATION
  Report Type: Report from Study
  Country: US (occurrence: US)
  Receive Date: 20221010
  Receipt Date: 20221207
  Transmission Date: 20230113
  Serious: Yes (Hospitalization, Other)
  Sender: FDA-Public Use
  Company Number: US-G1 THERAPEUTICS-2022G1US0000228

PATIENT

DRUGS (47)
  1. TRILACICLIB [Suspect]
     Active Substance: TRILACICLIB
     Indication: Myelosuppression
     Dosage: 390 MG; 240 MG/M2 ON DAY 1 AND 8 OF A 21-DAY CYCLE
     Route: 041
     Dates: start: 20220909, end: 20220916
  2. TRILACICLIB [Suspect]
     Active Substance: TRILACICLIB
     Dosage: 153.1 ML; 240 MG/M2 ON DAY 1 AND 8 OF A 21-DAY CYCLE
     Route: 041
     Dates: start: 20220929, end: 20220929
  3. CARBOPLATIN [Suspect]
     Active Substance: CARBOPLATIN
     Indication: Breast cancer metastatic
     Dosage: 190 MG; AUC2 ADMINISTERED ON DAY 1 AND 8 OF A 21-DAY CYCLE
     Route: 041
     Dates: start: 20220909, end: 20220916
  4. GEMCITABINE [Suspect]
     Active Substance: GEMCITABINE
     Indication: Breast cancer metastatic
     Dosage: 1786 MG ; 1000 MG/M2  ADMINISTERED ON DAY 1 AND 8 OF A 21-DAY CYCLE
     Route: 041
     Dates: start: 20220909, end: 20220916
  5. LIDOCAINE\PRILOCAINE [Concomitant]
     Active Substance: LIDOCAINE\PRILOCAINE
     Indication: Catheter management
     Dosage: UNK
     Route: 061
     Dates: start: 20220908
  6. ANASTROZOLE [Concomitant]
     Active Substance: ANASTROZOLE
     Indication: Breast cancer
     Dosage: UNK
     Route: 065
     Dates: start: 201909, end: 20220901
  7. ACETAMINOPHEN\OXYCODONE HYDROCHLORIDE [Concomitant]
     Active Substance: ACETAMINOPHEN\OXYCODONE HYDROCHLORIDE
     Indication: Pain
     Dosage: 5/325 MG, PRN
     Route: 048
     Dates: start: 20220804
  8. ACETAMINOPHEN [Concomitant]
     Active Substance: ACETAMINOPHEN
     Indication: Pain
     Dosage: 1000 MG, PRN
     Route: 048
     Dates: start: 202201
  9. LORAZEPAM [Concomitant]
     Active Substance: LORAZEPAM
     Indication: Anxiety
     Dosage: 0.5 MG, PRN
     Route: 048
     Dates: start: 20220804
  10. OXYGEN [Concomitant]
     Active Substance: OXYGEN
     Indication: Wheezing
     Dosage: CONTINUOUS QD, PRN
     Route: 055
     Dates: start: 202207
  11. OXYGEN [Concomitant]
     Active Substance: OXYGEN
     Indication: Dyspnoea
  12. BREO ELLIPTA [Concomitant]
     Active Substance: FLUTICASONE FUROATE\VILANTEROL TRIFENATATE
     Indication: Wheezing
     Dosage: UNK, PRN
     Route: 055
     Dates: start: 202207
  13. BREO ELLIPTA [Concomitant]
     Active Substance: FLUTICASONE FUROATE\VILANTEROL TRIFENATATE
     Indication: Dyspnoea
  14. OMEPRAZOLE [Concomitant]
     Active Substance: OMEPRAZOLE
     Indication: Gastrooesophageal reflux disease
     Dosage: 20 MG, QD
     Route: 048
     Dates: start: 2020
  15. TRAZODONE [Concomitant]
     Active Substance: TRAZODONE HYDROCHLORIDE
     Indication: Depression
     Dosage: 150 MG, PRN
     Route: 048
     Dates: start: 2020
  16. TRAZODONE [Concomitant]
     Active Substance: TRAZODONE HYDROCHLORIDE
     Indication: Insomnia
  17. GABAPENTIN [Concomitant]
     Active Substance: GABAPENTIN
     Indication: Neuropathy peripheral
     Dosage: 300 MG, TID
     Route: 048
     Dates: start: 2018
  18. HYDROCHLOROTHIAZIDE\LOSARTAN [Concomitant]
     Active Substance: HYDROCHLOROTHIAZIDE\LOSARTAN
     Indication: Hypertension
     Dosage: 50 MG, QD @ HS
     Route: 048
     Dates: start: 2018
  19. AMLODIPINE [Concomitant]
     Active Substance: AMLODIPINE BESYLATE
     Indication: Hypertension
     Dosage: 5 MG, QAM
     Route: 048
     Dates: start: 2018
  20. GAS-X [Concomitant]
     Active Substance: DIMETHICONE
     Indication: Abdominal distension
     Dosage: 250 MG, PRN
     Route: 048
     Dates: start: 2018
  21. ZOLOFT [Concomitant]
     Active Substance: SERTRALINE HYDROCHLORIDE
     Indication: Depression
     Dosage: 150 MG, QD @HS
     Route: 048
     Dates: start: 2018
  22. LOPERAMIDE [Concomitant]
     Active Substance: LOPERAMIDE
     Indication: Diarrhoea
     Dosage: 2 MG, PRN
     Route: 048
     Dates: start: 2018
  23. LOMOTIL [Concomitant]
     Active Substance: ATROPINE SULFATE\DIPHENOXYLATE HYDROCHLORIDE
     Indication: Diarrhoea
     Dosage: 2.5 MG, PRN
     Route: 048
     Dates: start: 2018
  24. ALBUTEROL [Concomitant]
     Active Substance: ALBUTEROL
     Indication: Asthma
     Dosage: 2 PUFFS PRN
     Route: 055
     Dates: start: 1983
  25. ZYRTEC [Concomitant]
     Active Substance: CETIRIZINE HYDROCHLORIDE
     Indication: Rhinitis allergic
     Dosage: 10 MG, PRN
     Route: 048
     Dates: start: 1960
  26. CALCIUM CARBONATE\CHOLECALCIFEROL [Concomitant]
     Active Substance: CALCIUM CARBONATE\CHOLECALCIFEROL
     Indication: Vitamin supplementation
     Dosage: 500 MG CA+ 800 IU D3, QD
     Route: 048
  27. BIOTIN [Concomitant]
     Active Substance: BIOTIN
     Indication: Vitamin supplementation
     Dosage: 2500 MG, QD
     Route: 048
     Dates: start: 2018
  28. GINKGO [Concomitant]
     Active Substance: GINKGO
     Indication: Supplementation therapy
     Dosage: 120 MG, QD
     Route: 048
     Dates: start: 2020
  29. HERBALS\TURMERIC [Concomitant]
     Active Substance: HERBALS\TURMERIC
     Indication: Supplementation therapy
     Dosage: 500 MG, QD
     Route: 048
     Dates: start: 2020
  30. CAPSAICIN [Concomitant]
     Active Substance: CAPSAICIN
     Indication: Pain
     Dosage: UNK, PRN
     Route: 061
     Dates: start: 2018
  31. PROCHLORPERAZINE [Concomitant]
     Active Substance: PROCHLORPERAZINE
     Indication: Nausea
     Dosage: 6 MG, Q6 HRS, PRN
     Route: 048
     Dates: start: 20220911
  32. PROCHLORPERAZINE [Concomitant]
     Active Substance: PROCHLORPERAZINE
     Dosage: 10 MG, SINGLE
     Route: 042
     Dates: start: 20220916, end: 20220916
  33. CEPHALEXIN [Concomitant]
     Active Substance: CEPHALEXIN
     Indication: Sinusitis
     Dosage: 500 MG, BID Q12H
     Route: 048
     Dates: start: 20220913
  34. SULFAMETHOXAZOLE SODIUM;TRIMETHOPRIM [Concomitant]
     Indication: Sinusitis
     Dosage: 160 MG, QD
     Route: 048
     Dates: start: 20220913, end: 20220914
  35. ONDANSETRON [Concomitant]
     Active Substance: ONDANSETRON
     Indication: Premedication
     Dosage: 16 MG, DAY 1 + 8 OF 21-DAY CYCLE BEFORE GEMCITABINE
     Route: 042
     Dates: start: 20220909
  36. DEXAMETHASONE [Concomitant]
     Active Substance: DEXAMETHASONE
     Indication: Premedication
     Dosage: 12 UNK, DAY 1 + 8 OF 21-DAY CYCLE
     Route: 042
     Dates: start: 20220909
  37. EMEND (FOSAPREPITANT DIMEGLUMINE) [Concomitant]
     Active Substance: FOSAPREPITANT DIMEGLUMINE
     Indication: Nausea
     Dosage: 150 MG, SINGLE
     Route: 042
     Dates: start: 20220916
  38. ONDANSETRON [Concomitant]
     Active Substance: ONDANSETRON
     Indication: Nausea
     Dosage: 8 MG, PRN
     Route: 048
     Dates: start: 20220911
  39. DIPHENHYDRAMINE [Concomitant]
     Active Substance: DIPHENHYDRAMINE
     Indication: Rash
     Dosage: 25 MG, Q4-6 HRS. PRN, NO MORE THAN 6/DAYPRN
     Route: 048
     Dates: start: 20220916
  40. OLANZAPINE [Concomitant]
     Active Substance: OLANZAPINE
     Indication: Nausea
     Dosage: 5 MG, 1 5-MG TAB QD X 3 DAYS AFTER EVERY CHEMO
     Route: 048
     Dates: start: 20220920
  41. HOMEOPATHICS [Concomitant]
     Active Substance: HOMEOPATHICS
     Indication: Rash
     Dosage: UNK, PRN
     Route: 061
     Dates: start: 20220920, end: 20220929
  42. CURCUMIN [Concomitant]
     Active Substance: CURCUMIN
     Indication: Supplementation therapy
     Dosage: 500 MG, QD
     Route: 048
     Dates: start: 2022
  43. SOLU-MEDROL [Concomitant]
     Active Substance: METHYLPREDNISOLONE SODIUM SUCCINATE
     Indication: Infusion related reaction
     Dosage: 125 MG, SINGLE
     Route: 042
     Dates: start: 20220929, end: 20220929
  44. DIPHENHYDRAMINE [Concomitant]
     Active Substance: DIPHENHYDRAMINE
     Indication: Infusion related reaction
     Dosage: 50 MG, SINGLE
     Route: 042
     Dates: start: 20220929, end: 20220929
  45. EPINEPHRINE HYDROCHLORIDE [Concomitant]
     Active Substance: EPINEPHRINE HYDROCHLORIDE
     Indication: Infusion related reaction
     Dosage: 0.5 MG, SINGLE
     Route: 042
     Dates: start: 20220929, end: 20220929
  46. HYDROCORTISONE SODIUM SUCCINATE [Concomitant]
     Active Substance: HYDROCORTISONE SODIUM SUCCINATE
     Indication: Infusion related reaction
     Dosage: 100 MG, SINGLE
     Route: 042
     Dates: start: 20220929, end: 20220929
  47. DEMEROL [Concomitant]
     Active Substance: MEPERIDINE HYDROCHLORIDE
     Indication: Infusion related reaction
     Dosage: 25 MG, SINGLE
     Route: 042
     Dates: start: 20220929, end: 20220929

REACTIONS (1)
  - Electrocardiogram QT prolonged [Recovered/Resolved]

NARRATIVE: CASE EVENT DATE: 20220929
